FAERS Safety Report 6889265-4 (Version None)
Quarter: 2010Q3

REPORT INFORMATION
  Report Type: 
  Country: None (occurrence: None)
  Receive Date: 20100730
  Receipt Date: 20080129
  Transmission Date: 20110219
  Serious: No
  Sender: FDA-Public Use
  Company Number: US-PFIZER INC-2008009958

PATIENT
  Sex: Female
  Weight: 74.84 kg

DRUGS (10)
  1. LIPITOR [Suspect]
     Indication: BLOOD CHOLESTEROL ABNORMAL
     Dates: start: 20060601
  2. LISINOPRIL [Suspect]
  3. LEVOTHYROXINE SODIUM [Concomitant]
  4. COZAAR [Concomitant]
  5. COREG [Concomitant]
  6. FOSAMAX [Concomitant]
  7. ACETYLSALICYLIC ACID SRT [Concomitant]
  8. CITRACAL + D [Concomitant]
  9. ONCE-A-DAY [Concomitant]
  10. ASCORBIC ACID [Concomitant]

REACTIONS (7)
  - ALOPECIA [None]
  - ARTHRITIS [None]
  - BLOOD GLUCOSE INCREASED [None]
  - GAIT DISTURBANCE [None]
  - MUSCLE DISORDER [None]
  - MUSCLE TIGHTNESS [None]
  - MUSCULAR WEAKNESS [None]
